FAERS Safety Report 8153371-7 (Version None)
Quarter: 2012Q1

REPORT INFORMATION
  Report Type: 
  Country: None (occurrence: None)
  Receive Date: 20120221
  Receipt Date: 20120217
  Transmission Date: 20120608
  Serious: Yes (Death, Hospitalization, Other)
  Sender: FDA-Public Use
  Company Number: BR-ROCHE-714927

PATIENT
  Sex: Female
  Weight: 61.5 kg

DRUGS (29)
  1. MABTHERA [Suspect]
     Indication: RHEUMATOID ARTHRITIS
     Dosage: ROUTE: ENDOVENOUS; FORM: INFUSION; DOSE: 500 MG/ 50 ML
     Route: 042
  2. MABTHERA [Suspect]
     Dosage: DOSE: 500 MG/ 50 ML
     Route: 042
     Dates: start: 20110101, end: 20110208
  3. MABTHERA [Suspect]
     Dosage: DOSE: 500 MG/ 50 ML
     Route: 042
  4. FOLIC ACID [Concomitant]
  5. UNKNOWN MEDICATION [Concomitant]
     Dosage: DRUG REPORTED AS OMEGA 3
  6. BENERVA [Concomitant]
  7. CORTISONE ACETATE [Suspect]
     Indication: PRODUCT USED FOR UNKNOWN INDICATION
     Route: 065
  8. LEVOTHYROXINE SODIUM [Concomitant]
  9. OMEPRAZOLE [Concomitant]
  10. CLORANA [Concomitant]
  11. VITAMIN B-12 [Concomitant]
     Dosage: DRUG REPORTED AS B-12 COMPLEX
  12. CALCI-D [Concomitant]
     Dosage: DRUG REPORTED AS CALCIO + D
  13. MABTHERA [Suspect]
     Dosage: DOSE: 500 MG/ 50 ML
     Route: 042
  14. MABTHERA [Suspect]
     Dosage: DOSE: 500 MG/ 50 ML
     Route: 042
  15. SIMVASTATIN [Concomitant]
  16. MABTHERA [Suspect]
     Dosage: DOSE: 500 MG/ 50 ML
     Route: 042
  17. INSULIN [Concomitant]
     Dosage: DRUG: UNSPECIFIED INSULIN
  18. IRON [Concomitant]
  19. LORAZEPAM [Concomitant]
  20. DIOSMIN [Concomitant]
  21. CALCIUM [Concomitant]
  22. CRESTOR [Concomitant]
  23. MABTHERA [Suspect]
     Dosage: DOSE: 500 MG/ 50 ML
     Route: 042
  24. LOSARTAN POTASSIUM [Concomitant]
  25. ALENDRONATE SODIUM [Concomitant]
     Dosage: DRUG REPORTED AS ALENDRONATE
  26. MIACALCIN [Concomitant]
     Dosage: 1 DROP EACH NOSTRIL EACH 15 DAYS
     Route: 045
  27. METFORMIN HYDROCHLORIDE [Concomitant]
  28. AMLODIPINE [Suspect]
     Indication: PRODUCT USED FOR UNKNOWN INDICATION
     Route: 065
  29. DIOVAN [Concomitant]

REACTIONS (15)
  - OSTEOPOROSIS [None]
  - BONE PAIN [None]
  - SPINAL FRACTURE [None]
  - GASTROINTESTINAL VIRAL INFECTION [None]
  - DIABETES MELLITUS [None]
  - CEREBROVASCULAR ACCIDENT [None]
  - BLOOD PRESSURE INADEQUATELY CONTROLLED [None]
  - DIABETES MELLITUS INADEQUATE CONTROL [None]
  - THERAPEUTIC RESPONSE DECREASED [None]
  - PHYSICAL EXAMINATION ABNORMAL [None]
  - HYPERSENSITIVITY [None]
  - ERYSIPELAS [None]
  - WEIGHT INCREASED [None]
  - PAIN IN EXTREMITY [None]
  - BLOOD GLUCOSE INCREASED [None]
